FAERS Safety Report 13668077 (Version 1)
Quarter: 2017Q2

REPORT INFORMATION
  Report Type: Spontaneous
  Country: US (occurrence: US)
  Receive Date: 20170620
  Receipt Date: 20170620
  Transmission Date: 20170830
  Serious: No
  Sender: FDA-Public Use
  Company Number: US-PFIZER INC-2017261519

PATIENT
  Sex: Male

DRUGS (1)
  1. XELJANZ XR [Suspect]
     Active Substance: TOFACITINIB CITRATE
     Dosage: 0.5 DF, DAILY (ONE HALF TABLET DAILY)

REACTIONS (8)
  - Synovitis [Unknown]
  - Low density lipoprotein increased [Unknown]
  - Joint swelling [Unknown]
  - Blood pressure increased [Recovering/Resolving]
  - Blood cholesterol increased [Unknown]
  - Joint stiffness [Unknown]
  - Intentional product use issue [Unknown]
  - Arthralgia [Unknown]
